FAERS Safety Report 19106679 (Version 7)
Quarter: 2021Q3

REPORT INFORMATION
  Report Type: Report from Study
  Country: None (occurrence: US)
  Receive Date: 20210407
  Receipt Date: 20210831
  Transmission Date: 20211014
  Serious: Yes (Hospitalization, Other)
  Sender: FDA-Public Use
  Company Number: US-ABBVIE-21K-163-3842292-00

PATIENT
  Sex: Female
  Weight: 85.81 kg

DRUGS (7)
  1. HUMIRA [Suspect]
     Active Substance: ADALIMUMAB
     Route: 058
     Dates: start: 2017, end: 202104
  2. HUMIRA [Suspect]
     Active Substance: ADALIMUMAB
     Route: 058
     Dates: start: 202104
  3. HUMIRA [Suspect]
     Active Substance: ADALIMUMAB
     Indication: PSORIASIS
     Route: 058
     Dates: end: 2021
  4. HUMIRA [Suspect]
     Active Substance: ADALIMUMAB
     Indication: PSORIASIS
     Route: 058
     Dates: start: 2015, end: 2017
  5. ASPIRIN. [Concomitant]
     Active Substance: ASPIRIN
     Indication: ANTICOAGULANT THERAPY
  6. POTASSIUM [Concomitant]
     Active Substance: POTASSIUM
     Indication: SUPPLEMENTATION THERAPY
  7. VITAMINS [Concomitant]
     Active Substance: VITAMINS
     Indication: SUPPLEMENTATION THERAPY

REACTIONS (29)
  - Abdominal hernia [Recovered/Resolved]
  - Catheter placement [Unknown]
  - Procedural complication [Unknown]
  - Post procedural contusion [Not Recovered/Not Resolved]
  - Lung disorder [Not Recovered/Not Resolved]
  - Memory impairment [Recovered/Resolved]
  - Visual impairment [Not Recovered/Not Resolved]
  - Neck pain [Not Recovered/Not Resolved]
  - Back pain [Unknown]
  - Insomnia [Not Recovered/Not Resolved]
  - Abdominal hernia [Recovered/Resolved]
  - Illness [Not Recovered/Not Resolved]
  - Post procedural haematoma [Recovered/Resolved]
  - Pain in extremity [Not Recovered/Not Resolved]
  - Pneumonia [Not Recovered/Not Resolved]
  - Joint range of motion decreased [Not Recovered/Not Resolved]
  - Feeling abnormal [Recovered/Resolved]
  - Contusion [Recovered/Resolved]
  - Headache [Recovering/Resolving]
  - Angina pectoris [Not Recovered/Not Resolved]
  - Coronary arterial stent insertion [Recovered/Resolved]
  - Pruritus [Recovered/Resolved]
  - Psoriasis [Recovering/Resolving]
  - Arthralgia [Not Recovered/Not Resolved]
  - Coronary artery occlusion [Not Recovered/Not Resolved]
  - Lung disorder [Not Recovered/Not Resolved]
  - Chronic obstructive pulmonary disease [Not Recovered/Not Resolved]
  - Pneumonia [Not Recovered/Not Resolved]
  - Venous occlusion [Recovering/Resolving]

NARRATIVE: CASE EVENT DATE: 2017
